FAERS Safety Report 5142147-0 (Version None)
Quarter: 2006Q4

REPORT INFORMATION
  Report Type: 
  Country: None (occurrence: None)
  Receive Date: 20061102
  Receipt Date: 20060824
  Transmission Date: 20070319
  Serious: Yes (Hospitalization, Other)
  Sender: FDA-Public Use
  Company Number: JP-PURDUE-MAG_2006_0000480

PATIENT
  Age: 79 Year
  Sex: Male

DRUGS (8)
  1. THEOPHYLLINE [Suspect]
     Indication: EMPHYSEMA
     Dosage: 200 MG, DAILY
     Route: 048
     Dates: start: 20050415, end: 20060805
  2. THEOPHYLLINE [Suspect]
     Dosage: 400 MG, SINGLE
     Route: 048
     Dates: start: 20060806, end: 20060806
  3. THEOPHYLLINE [Suspect]
     Dosage: 200 MG, AM
     Route: 048
     Dates: start: 20060808, end: 20060808
  4. THEOPHYLLINE [Suspect]
     Dosage: 600 MG, SINGLE
     Route: 048
     Dates: start: 20060807, end: 20060807
  5. THEOPHYLLINE [Suspect]
     Dosage: 100 MG, DAILY
     Route: 048
     Dates: start: 20060911
  6. TAMSULOSIN HCL [Concomitant]
     Indication: BENIGN PROSTATIC HYPERPLASIA
     Dosage: .2 MG, DAILY
     Route: 048
     Dates: start: 20050425, end: 20060807
  7. RACOL [Concomitant]
     Indication: MALNUTRITION
     Dosage: 400 ML, PRN
     Route: 048
     Dates: start: 20060323
  8. OXYGEN [Concomitant]
     Indication: DRUG USE FOR UNKNOWN INDICATION
     Dosage: UNK UNK, UNK
     Dates: start: 20050415

REACTIONS (10)
  - BLOOD PRESSURE DECREASED [None]
  - DECREASED APPETITE [None]
  - DRUG LEVEL INCREASED [None]
  - INTENTIONAL DRUG MISUSE [None]
  - MALAISE [None]
  - ORAL INTAKE REDUCED [None]
  - SPEECH DISORDER [None]
  - TACHYCARDIA [None]
  - THERAPEUTIC AGENT TOXICITY [None]
  - VOMITING [None]
